FAERS Safety Report 6577716-4 (Version None)
Quarter: 2010Q1

REPORT INFORMATION
  Report Type: 
  Country: None (occurrence: None)
  Receive Date: 20100211
  Receipt Date: 20100204
  Transmission Date: 20100710
  Serious: Yes (Other)
  Sender: FDA-Public Use
  Company Number: US-RB-002128-10

PATIENT
  Age: 35 Year
  Sex: Male

DRUGS (5)
  1. SUBOXONE [Suspect]
     Route: 060
     Dates: start: 20090501
  2. ATIVAN [Concomitant]
     Indication: ANXIETY
     Dosage: UNIT DOSE UNKNOWN, STATES DOSE WAS 3 MG DAILY
     Route: 065
  3. RITALIN [Concomitant]
     Indication: ATTENTION DEFICIT/HYPERACTIVITY DISORDER
     Dosage: UNIT DOSE  UNKNOWN, STATES DOSE WAS 20 MG DAILY
     Route: 065
  4. EFFEXOR [Concomitant]
     Indication: DEPRESSION
     Dosage: UNIT DOSE  UNKNOWN, STATES DOSE WAS 200 MG
     Route: 065
  5. OVER THE COUNTER COLD MEDICINE [Suspect]
     Dosage: UNKNOWN DOSING DETAILS
     Route: 065
     Dates: start: 20100101

REACTIONS (2)
  - LOSS OF CONSCIOUSNESS [None]
  - NASOPHARYNGITIS [None]
